FAERS Safety Report 8571842-6 (Version None)
Quarter: 2012Q3

REPORT INFORMATION
  Report Type: 
  Country: None (occurrence: None)
  Receive Date: 20120806
  Receipt Date: 20120725
  Transmission Date: 20120928
  Serious: Yes (Hospitalization)
  Sender: FDA-Public Use
  Company Number: CN-NOVOPROD-356531

PATIENT
  Sex: Female

DRUGS (2)
  1. NOVOLIN R [Suspect]
     Dosage: 40 IU, BID
  2. NOVOLIN R [Suspect]
     Indication: PRODUCT USED FOR UNKNOWN INDICATION
     Dosage: 40 IU, BID
     Route: 065
     Dates: start: 20070101

REACTIONS (8)
  - CARDIAC DISORDER [None]
  - TOOTH LOSS [None]
  - DIZZINESS [None]
  - PRODUCT ODOUR ABNORMAL [None]
  - PRODUCT COUNTERFEIT [None]
  - PRODUCT CONTAINER ISSUE [None]
  - ASTHENIA [None]
  - DRUG INEFFECTIVE [None]
